FAERS Safety Report 4263606-9 (Version None)
Quarter: 2004Q1

REPORT INFORMATION
  Report Type: 
  Country: None (occurrence: None)
  Receive Date: 20040102
  Receipt Date: 20031212
  Transmission Date: 20041129
  Serious: Yes (Death, Hospitalization)
  Sender: FDA-Public Use
  Company Number: 2003-105989-NL

PATIENT
  Age: 12 Month
  Sex: Male

DRUGS (8)
  1. ROCURONIUM BROMIDE [Suspect]
     Indication: INTUBATION
     Dosage: 5MG INTRAVENNOUS (NOS)
     Route: 042
     Dates: start: 20030615, end: 20030615
  2. FLUMAZENIL [Suspect]
     Dosage: 1 MG INTRAVENOUS (NOS)
     Route: 042
     Dates: start: 20030615, end: 20030615
  3. AUGMENTIN [Concomitant]
  4. ACETAMINOPHEN [Concomitant]
  5. DIAZEPAM [Concomitant]
  6. LORAZEPAM [Concomitant]
  7. DIAZEPAM [Concomitant]
  8. PHENOBARBITAL TAB [Concomitant]

REACTIONS (5)
  - BRADYCARDIA [None]
  - CARDIAC ARREST [None]
  - DRUG INEFFECTIVE [None]
  - MEDICATION ERROR [None]
  - RESPIRATORY DISTRESS [None]
